FAERS Safety Report 18410399 (Version 2)
Quarter: 2020Q4

REPORT INFORMATION
  Report Type: Report from Study
  Country: None (occurrence: DE)
  Receive Date: 20201021
  Receipt Date: 20201025
  Transmission Date: 20210114
  Serious: Yes (Hospitalization)
  Sender: FDA-Public Use
  Company Number: DE-ABBVIE-20K-062-3614712-00

PATIENT
  Age: 43 Year
  Sex: Male
  Weight: 52 kg

DRUGS (6)
  1. MAVIRET [Suspect]
     Active Substance: GLECAPREVIR\PIBRENTASVIR
     Indication: CHRONIC HEPATITIS C
     Dosage: 100 MG GLECAPREVIR / 40 MG PIBRENTASVIR / 3 TABLETS DAILY
     Route: 048
     Dates: start: 20191202, end: 20200126
  2. DIAZEPAM. [Concomitant]
     Active Substance: DIAZEPAM
     Indication: PRODUCT USED FOR UNKNOWN INDICATION
     Route: 048
     Dates: start: 20000101, end: 20191217
  3. IBUPROFEN. [Concomitant]
     Active Substance: IBUPROFEN
     Indication: PRODUCT USED FOR UNKNOWN INDICATION
     Route: 048
     Dates: start: 20200226
  4. DIAZEPAM. [Concomitant]
     Active Substance: DIAZEPAM
     Route: 048
     Dates: start: 20191218, end: 20200614
  5. OXAZEPAM. [Concomitant]
     Active Substance: OXAZEPAM
     Indication: PRODUCT USED FOR UNKNOWN INDICATION
     Route: 048
     Dates: start: 20200615
  6. MIRTAZAPIN [Concomitant]
     Active Substance: MIRTAZAPINE
     Indication: DEPRESSION
     Route: 048
     Dates: start: 20200731, end: 20200829

REACTIONS (9)
  - Facial bones fracture [Recovered/Resolved]
  - Headache [Unknown]
  - Craniocerebral injury [Recovered/Resolved]
  - Nasal oedema [Unknown]
  - Skin laceration [Unknown]
  - Dizziness [Unknown]
  - Facial bones fracture [Unknown]
  - Asthenia [Unknown]
  - Head injury [Unknown]

NARRATIVE: CASE EVENT DATE: 202004
